FAERS Safety Report 15480128 (Version 1)
Quarter: 2018Q4

REPORT INFORMATION
  Report Type: Spontaneous
  Country: GR (occurrence: GR)
  Receive Date: 20181009
  Receipt Date: 20181009
  Transmission Date: 20190205
  Serious: Yes (Other)
  Sender: FDA-Public Use
  Company Number: GR-009507513-1810GRC002958

PATIENT
  Age: 45 Year
  Sex: Male
  Weight: 82 kg

DRUGS (4)
  1. ANTORCIN [Suspect]
     Active Substance: ATORVASTATIN CALCIUM
     Indication: HYPERLIPIDAEMIA
     Dates: start: 20170202, end: 20170630
  2. INEGY [Suspect]
     Active Substance: EZETIMIBE\SIMVASTATIN
     Indication: HYPERLIPIDAEMIA
     Dates: start: 20150805, end: 20151207
  3. LIVAZO [Suspect]
     Active Substance: PITAVASTATIN CALCIUM
     Indication: HYPERLIPIDAEMIA
     Dates: start: 20150203, end: 20150804
  4. LIPTRUZET [Suspect]
     Active Substance: ATORVASTATIN CALCIUM\EZETIMIBE
     Indication: HYPERLIPIDAEMIA
     Dates: start: 20170630, end: 20171127

REACTIONS (4)
  - Vision blurred [Unknown]
  - Dizziness [Unknown]
  - Myalgia [Unknown]
  - Back pain [Unknown]
